FAERS Safety Report 22313880 (Version 2)
Quarter: 2023Q2

REPORT INFORMATION
  Report Type: Other
  Country: RU (occurrence: None)
  Receive Date: 20230512
  Receipt Date: 20230519
  Transmission Date: 20230722
  Serious: Yes (Hospitalization, Other)
  Sender: FDA-Public Use
  Company Number: RU-ROCHE-3344591

PATIENT
  Age: 74 Year
  Sex: Female
  Weight: 60 kg

DRUGS (15)
  1. ATEZOLIZUMAB [Suspect]
     Active Substance: ATEZOLIZUMAB
     Indication: Hepatocellular carcinoma
     Dosage: ON 01/NOV/2022, SHE STARTED AND ENDED  MOST RECENT DOSE OF STUDY DRUG PRIOR TO AE/SAE
     Route: 041
     Dates: start: 20221101
  2. BEVACIZUMAB [Suspect]
     Active Substance: BEVACIZUMAB
     Indication: Hepatocellular carcinoma
     Route: 065
     Dates: start: 20221101
  3. OMEPRAZOLE [Concomitant]
     Active Substance: OMEPRAZOLE
     Dates: start: 20180125
  4. EUTHYROX [Concomitant]
     Active Substance: LEVOTHYROXINE SODIUM
     Dates: start: 20020101
  5. TOCOPHEROL ACETATE [Concomitant]
     Active Substance: .ALPHA.-TOCOPHEROL ACETATE
     Dates: start: 20221018
  6. KETOROLAC [Concomitant]
     Active Substance: KETOROLAC TROMETHAMINE
     Dates: start: 20220901
  7. DEXAMETHASONE [Concomitant]
     Active Substance: DEXAMETHASONE
     Dates: start: 20221115, end: 20221124
  8. ALBUMIN HUMAN [Concomitant]
     Active Substance: ALBUMIN HUMAN
     Dates: start: 20221115, end: 20221118
  9. ENOXAPARIN SODIUM [Concomitant]
     Active Substance: ENOXAPARIN SODIUM
     Dates: start: 20221115, end: 20221118
  10. MENADIONE [Concomitant]
     Active Substance: MENADIONE
     Dates: start: 20221115, end: 20221118
  11. CARVEDILOL [Concomitant]
     Active Substance: CARVEDILOL
     Dates: start: 20221115, end: 20221118
  12. ADEMETIONINE [Concomitant]
     Active Substance: ADEMETIONINE
     Dates: start: 20221115, end: 20221118
  13. LACTULOSE [Concomitant]
     Active Substance: LACTULOSE
     Dates: start: 20221115, end: 20221124
  14. MEGLUMINE SODIUM SUCCINATE [Concomitant]
     Dates: start: 20221115, end: 20221124
  15. SPIRONOLACTONE [Concomitant]
     Active Substance: SPIRONOLACTONE
     Dates: start: 20221118, end: 20221124

REACTIONS (12)
  - Ascites [Not Recovered/Not Resolved]
  - Respiratory failure [Not Recovered/Not Resolved]
  - Cachexia [Not Recovered/Not Resolved]
  - Acute hepatic failure [Not Recovered/Not Resolved]
  - Aspartate aminotransferase increased [Not Recovered/Not Resolved]
  - Jaundice cholestatic [Not Recovered/Not Resolved]
  - Bilirubin conjugated increased [Not Recovered/Not Resolved]
  - Portal hypertension [Not Recovered/Not Resolved]
  - Pleurisy [Not Recovered/Not Resolved]
  - Nausea [Recovered/Resolved]
  - Tachycardia [Not Recovered/Not Resolved]
  - Vomiting [Recovered/Resolved]

NARRATIVE: CASE EVENT DATE: 20221115
